FAERS Safety Report 9830087 (Version 1)
Quarter: 2014Q1

REPORT INFORMATION
  Report Type: Spontaneous
  Country: US (occurrence: US)
  Receive Date: 20140120
  Receipt Date: 20140120
  Transmission Date: 20141002
  Serious: Yes (Hospitalization)
  Sender: FDA-Public Use
  Company Number: US-SA-2014SA007061

PATIENT
  Age: 62 Year
  Sex: Female
  Weight: 81 kg

DRUGS (10)
  1. AMBIEN [Suspect]
     Indication: PAIN MANAGEMENT
     Route: 065
     Dates: end: 2012
  2. INFLIXIMAB [Suspect]
     Indication: PSORIATIC ARTHROPATHY
     Route: 042
     Dates: end: 2012
  3. FENTANYL [Suspect]
     Indication: PAIN IN EXTREMITY
     Route: 065
     Dates: start: 2007, end: 2012
  4. ENBREL [Suspect]
     Indication: PSORIATIC ARTHROPATHY
     Route: 065
     Dates: end: 2012
  5. HUMIRA [Suspect]
     Indication: PSORIATIC ARTHROPATHY
     Route: 065
     Dates: end: 2012
  6. OXYCODONE [Suspect]
     Indication: PAIN MANAGEMENT
     Route: 065
     Dates: end: 2012
  7. EFFEXOR [Suspect]
     Indication: PAIN MANAGEMENT
     Route: 065
     Dates: end: 2012
  8. AMITRIPTYLINE [Suspect]
     Indication: PAIN MANAGEMENT
     Route: 065
     Dates: end: 2012
  9. ALL OTHER THERAPEUTIC PRODUCTS [Suspect]
     Indication: PAIN MANAGEMENT
     Route: 065
     Dates: end: 2012
  10. METHOTREXATE [Concomitant]
     Indication: PSORIATIC ARTHROPATHY
     Route: 065

REACTIONS (7)
  - Osteomyelitis [Unknown]
  - Cerebrovascular accident [Recovered/Resolved]
  - Syncope [Recovered/Resolved]
  - Cataract [Not Recovered/Not Resolved]
  - Visual impairment [Not Recovered/Not Resolved]
  - Nasopharyngitis [Not Recovered/Not Resolved]
  - Nasopharyngitis [Not Recovered/Not Resolved]
